FAERS Safety Report 8356919-2 (Version None)
Quarter: 2012Q2

REPORT INFORMATION
  Report Type: 
  Country: None (occurrence: None)
  Receive Date: 20120510
  Receipt Date: 20120501
  Transmission Date: 20120825
  Serious: Yes (Hospitalization)
  Sender: FDA-Public Use
  Company Number: 2012SP023197

PATIENT
  Age: 3 Year
  Sex: Male

DRUGS (1)
  1. NASONEX [Suspect]
     Indication: MULTIPLE ALLERGIES
     Dosage: QD;NAS
     Route: 045
     Dates: start: 20120413, end: 20120418

REACTIONS (4)
  - PYREXIA [None]
  - RHINORRHOEA [None]
  - OBSTRUCTIVE AIRWAYS DISORDER [None]
  - COUGH [None]
